FAERS Safety Report 14143809 (Version 3)
Quarter: 2018Q1

REPORT INFORMATION
  Report Type: Spontaneous
  Country: GB (occurrence: GB)
  Receive Date: 20171031
  Receipt Date: 20180316
  Transmission Date: 20180508
  Serious: Yes (Other)
  Sender: FDA-Public Use
  Company Number: GB-ROCHE-2011330

PATIENT
  Age: 61 Year
  Sex: Male

DRUGS (2)
  1. RITUXIMAB. [Suspect]
     Active Substance: RITUXIMAB
     Indication: PRODUCT USED FOR UNKNOWN INDICATION
     Dosage: UNK
     Route: 065
  2. CLOZARIL [Suspect]
     Active Substance: CLOZAPINE
     Indication: SCHIZOPHRENIA
     Dosage: UNK
     Route: 048
     Dates: start: 20031121, end: 20170901

REACTIONS (12)
  - Lymphoma [Unknown]
  - Lymphocyte count decreased [Unknown]
  - Platelet count increased [Unknown]
  - Haemoglobin decreased [Not Recovered/Not Resolved]
  - Monocyte count increased [Unknown]
  - Neutrophil count decreased [Recovered/Resolved]
  - White blood cell count decreased [Recovered/Resolved]
  - Neutrophil count increased [Unknown]
  - Full blood count abnormal [Unknown]
  - White blood cell count increased [Unknown]
  - Platelet count decreased [Recovered/Resolved]
  - Drug ineffective [Unknown]

NARRATIVE: CASE EVENT DATE: 20161007
